FAERS Safety Report 14246851 (Version 1)
Quarter: 2017Q4

REPORT INFORMATION
  Report Type: Spontaneous
  Country: US (occurrence: None)
  Receive Date: 20171201
  Receipt Date: 20171201
  Transmission Date: 20180321
  Serious: No
  Sender: FDA-Public Use
  Company Number: None

PATIENT
  Age: 80 Year
  Sex: Female

DRUGS (9)
  1. METHTREXATE [Concomitant]
  2. CALCITROL [Concomitant]
     Active Substance: CALCITRIOL
  3. ATORVASTATIN [Concomitant]
     Active Substance: ATORVASTATIN
  4. ENBREL [Suspect]
     Active Substance: ETANERCEPT
     Indication: RHEUMATOID ARTHRITIS
     Route: 058
     Dates: start: 20170804
  5. NOVOLOG [Concomitant]
     Active Substance: INSULIN ASPART
  6. METFORMIN [Concomitant]
     Active Substance: METFORMIN HYDROCHLORIDE
  7. ALENDRONATE ACID (ALENDRONATE ACID) [Concomitant]
     Active Substance: ALENDRONIC ACID
  8. FOLIC ACID. [Suspect]
     Active Substance: FOLIC ACID
  9. ASPIRIN. [Concomitant]
     Active Substance: ASPIRIN

REACTIONS (1)
  - Cardiac disorder [None]

NARRATIVE: CASE EVENT DATE: 20171127
